FAERS Safety Report 10225077 (Version 5)
Quarter: 2015Q3

REPORT INFORMATION
  Report Type: Spontaneous
  Country: US (occurrence: US)
  Receive Date: 20140609
  Receipt Date: 20150709
  Transmission Date: 20151125
  Serious: Yes (Hospitalization, Other)
  Sender: FDA-Public Use
  Company Number: US-009507513-1406USA004356

PATIENT
  Sex: Male
  Weight: 102.4 kg

DRUGS (1)
  1. PROPECIA [Suspect]
     Active Substance: FINASTERIDE
     Indication: ALOPECIA
     Dosage: 1 MG, QD
     Route: 048
     Dates: start: 1998, end: 20110806

REACTIONS (67)
  - Surgery [Unknown]
  - Hypoglycaemia [Recovered/Resolved]
  - Epididymitis [Unknown]
  - Palpitations [Unknown]
  - Disturbance in attention [Not Recovered/Not Resolved]
  - Rhinitis allergic [Unknown]
  - Upper respiratory tract infection [Unknown]
  - Cough [Unknown]
  - Panic attack [Not Recovered/Not Resolved]
  - Knee operation [Unknown]
  - Cellulitis [Unknown]
  - Sleep apnoea syndrome [Unknown]
  - Lymphadenitis [Unknown]
  - Night sweats [Unknown]
  - Depression [Not Recovered/Not Resolved]
  - Libido decreased [Unknown]
  - Alcohol abuse [Unknown]
  - Amnesia [Not Recovered/Not Resolved]
  - Vision blurred [Unknown]
  - Wound [Unknown]
  - Anxiety [Unknown]
  - Hyperlipidaemia [Unknown]
  - Hypogammaglobulinaemia [Unknown]
  - Pyrexia [Unknown]
  - Sexual dysfunction [Not Recovered/Not Resolved]
  - Semen volume decreased [Unknown]
  - Arthropathy [Unknown]
  - Blood potassium decreased [Recovered/Resolved]
  - Hydrocele [Unknown]
  - Gastrooesophageal reflux disease [Unknown]
  - Proctitis ulcerative [Unknown]
  - Arthropod bite [Unknown]
  - Headache [Unknown]
  - Hyperglycaemia [Unknown]
  - Chills [Unknown]
  - Dermatitis contact [Unknown]
  - Hypertension [Unknown]
  - Blepharitis [Unknown]
  - Nasal septum deviation [Unknown]
  - Wheezing [Unknown]
  - Abnormal weight gain [Unknown]
  - Anxiety [Not Recovered/Not Resolved]
  - Headache [Unknown]
  - Mitral valve prolapse [Unknown]
  - Arthralgia [Unknown]
  - Attention deficit/hyperactivity disorder [Unknown]
  - Colitis ulcerative [Unknown]
  - Infectious mononucleosis [Unknown]
  - Back pain [Unknown]
  - Ligament sprain [Unknown]
  - Myositis [Unknown]
  - Substance abuse [Unknown]
  - Cognitive disorder [Not Recovered/Not Resolved]
  - Exposure to communicable disease [Unknown]
  - Costochondritis [Recovering/Resolving]
  - Irritable bowel syndrome [Unknown]
  - Myalgia [Unknown]
  - Erectile dysfunction [Not Recovered/Not Resolved]
  - Inflammatory bowel disease [Unknown]
  - Pancreatitis acute [Unknown]
  - Fatigue [Unknown]
  - Aphthous ulcer [Unknown]
  - Nightmare [Unknown]
  - Ophthalmoplegic migraine [Unknown]
  - Haemoptysis [Unknown]
  - Dyspnoea [Unknown]
  - Adverse event [Unknown]

NARRATIVE: CASE EVENT DATE: 2002
